FAERS Safety Report 8675116 (Version 3)
Quarter: 2012Q4

REPORT INFORMATION
  Report Type: 
  Country: JP (occurrence: JP)
  Receive Date: 20120720
  Receipt Date: 20121107
  Transmission Date: 20130627
  Serious: Yes (Hospitalization, Other)
  Sender: FDA-Public Use
  Company Number: JP-JNJFOC-20120707279

PATIENT
  Age: 84 Year
  Sex: Female
  Weight: 55 kg

DRUGS (12)
  1. REMINYL [Suspect]
     Indication: DEMENTIA ALZHEIMER^S TYPE
     Dosage: oro-dispersible tablet
     Route: 048
     Dates: start: 20120525
  2. REMINYL [Suspect]
     Indication: DEMENTIA ALZHEIMER^S TYPE
     Dosage: oro-dispersible tablet
     Route: 048
     Dates: start: 20120510, end: 20120525
  3. REMINYL [Suspect]
     Indication: DEMENTIA ALZHEIMER^S TYPE
     Dosage: oro-dispersible tablet
     Route: 048
     Dates: start: 201206, end: 201207
  4. WARFARIN [Concomitant]
     Indication: SICK SINUS SYNDROME
     Route: 048
     Dates: start: 20120510, end: 20120518
  5. WARFARIN [Concomitant]
     Indication: SICK SINUS SYNDROME
     Route: 048
     Dates: start: 20120518, end: 20120525
  6. WARFARIN [Concomitant]
     Indication: ATRIAL FIBRILLATION
     Route: 048
     Dates: start: 20120518, end: 20120525
  7. WARFARIN [Concomitant]
     Indication: ATRIAL FIBRILLATION
     Route: 048
     Dates: start: 20120510, end: 20120518
  8. PRAZAXA [Concomitant]
     Indication: ATRIAL FIBRILLATION
     Route: 048
     Dates: start: 20120525, end: 20120528
  9. DOGMATYL [Concomitant]
     Indication: MENTAL DISORDER
     Route: 048
     Dates: start: 20120608
  10. PAXIL [Concomitant]
     Indication: MENTAL DISORDER
     Route: 048
     Dates: start: 20120608
  11. PAXIL [Concomitant]
     Indication: SENILE PSYCHOSIS
     Route: 048
     Dates: start: 20120608
  12. PROMAC (POLAPREZINC) [Concomitant]
     Indication: GASTROINTESTINAL DISORDER
     Route: 048
     Dates: start: 20120525, end: 20120608

REACTIONS (4)
  - Shock [Unknown]
  - Haematemesis [Unknown]
  - Gastrointestinal disorder [Unknown]
  - Haematuria [Unknown]
